FAERS Safety Report 5732476-1 (Version None)
Quarter: 2008Q2

REPORT INFORMATION
  Report Type: 
  Country: None (occurrence: None)
  Receive Date: 20080508
  Receipt Date: 20080425
  Transmission Date: 20081010
  Serious: No
  Sender: FDA-Public Use
  Company Number: NL-ELI_LILLY_AND_COMPANY-NL200804006468

PATIENT
  Sex: Female
  Weight: 70 kg

DRUGS (5)
  1. CYMBALTA [Suspect]
     Indication: MAJOR DEPRESSION
     Dosage: 60 MG, UNK
     Dates: start: 20080226, end: 20080229
  2. INSULIN GLARGINE [Concomitant]
  3. SIMVASTATIN [Concomitant]
     Dosage: 50 MG, DAILY (1/D)
  4. PIPAMPERONE [Concomitant]
     Dosage: 80 MG, DAILY (1/D)
  5. OMEPRAZOLE [Concomitant]
     Dosage: 20 MG, UNK

REACTIONS (4)
  - DYSPNOEA [None]
  - HYPOAESTHESIA ORAL [None]
  - SPEECH DISORDER [None]
  - SWOLLEN TONGUE [None]
